FAERS Safety Report 7077620-1 (Version None)
Quarter: 2010Q4

REPORT INFORMATION
  Report Type: 
  Country: None (occurrence: None)
  Receive Date: 20101021
  Receipt Date: 20101006
  Transmission Date: 20110411
  Serious: Yes (Other)
  Sender: FDA-Public Use
  Company Number: GER/UKI/10/0016257

PATIENT
  Age: 65 Year
  Sex: Male
  Weight: 119 kg

DRUGS (10)
  1. TERBINAFINE HCL [Suspect]
     Indication: TINEA INFECTION
     Dosage: ORAL
     Route: 048
     Dates: start: 20100624, end: 20100722
  2. EXENATIDE (EXENATIDE) [Suspect]
     Indication: PRODUCT USED FOR UNKNOWN INDICATION
  3. HUMALOG [Suspect]
     Indication: PRODUCT USED FOR UNKNOWN INDICATION
  4. BENDROFLUMETHIAZIDE (BENDROFLUMETHIAZIDE) [Concomitant]
  5. CETIRIZINE HCL [Concomitant]
  6. DILTIAZEM [Concomitant]
  7. METFORMIN HCL [Concomitant]
  8. OMEPRAZOLE [Concomitant]
  9. PRAVASTATIN [Concomitant]
  10. VALSARTAN [Concomitant]

REACTIONS (2)
  - DRUG INTERACTION [None]
  - HYPOGLYCAEMIA [None]
